FAERS Safety Report 22027902 (Version 1)
Quarter: 2023Q1

REPORT INFORMATION
  Report Type: Spontaneous
  Country: US (occurrence: None)
  Receive Date: 20230220
  Receipt Date: 20230220
  Transmission Date: 20230418
  Serious: Yes (Hospitalization)
  Sender: FDA-Public Use
  Company Number: None

PATIENT
  Sex: Male

DRUGS (2)
  1. PREVYMIS [Suspect]
     Active Substance: LETERMOVIR
     Indication: Bone marrow transplant
     Dosage: FREQUENCY : DAILY;?
     Route: 048
     Dates: start: 202210
  2. PREVYMIS [Suspect]
     Active Substance: LETERMOVIR
     Indication: Immunodeficiency

REACTIONS (1)
  - Graft versus host disease [None]
